FAERS Safety Report 8194544-7 (Version None)
Quarter: 2012Q1

REPORT INFORMATION
  Report Type: 
  Country: None (occurrence: None)
  Receive Date: 20120308
  Receipt Date: 20110614
  Transmission Date: 20120608
  Serious: No
  Sender: FDA-Public Use
  Company Number: US-GLAXOSMITHKLINE-A0931457A

PATIENT
  Age: 48 Year
  Sex: Male

DRUGS (1)
  1. NICOTINE POLACRILEX [Suspect]
     Indication: TOBACCO ABUSE
     Dates: start: 20110601

REACTIONS (6)
  - GLOSSODYNIA [None]
  - HYPOAESTHESIA ORAL [None]
  - TONGUE DISORDER [None]
  - DYSGEUSIA [None]
  - DRUG ADMINISTRATION ERROR [None]
  - AGEUSIA [None]
